FAERS Safety Report 4743349-5 (Version None)
Quarter: 2005Q3

REPORT INFORMATION
  Report Type: 
  Country: None (occurrence: None)
  Receive Date: 20050809
  Receipt Date: 20050726
  Transmission Date: 20060218
  Serious: Yes (Death)
  Sender: FDA-Public Use
  Company Number: 2005BI013987

PATIENT
  Age: 77 Year
  Sex: Female
  Weight: 58 kg

DRUGS (10)
  1. ZEVALIN [Suspect]
     Indication: DIFFUSE LARGE B-CELL LYMPHOMA
     Dosage: SEE IMAGE
     Route: 042
     Dates: start: 20050518, end: 20050518
  2. ZEVALIN [Suspect]
     Indication: DIFFUSE LARGE B-CELL LYMPHOMA
     Dosage: SEE IMAGE
     Route: 042
     Dates: start: 20050518, end: 20050518
  3. ZEVALIN [Suspect]
     Indication: DIFFUSE LARGE B-CELL LYMPHOMA
     Dosage: SEE IMAGE
     Route: 042
     Dates: start: 20050525, end: 20050525
  4. ZEVALIN [Suspect]
     Indication: DIFFUSE LARGE B-CELL LYMPHOMA
     Dosage: SEE IMAGE
     Route: 042
     Dates: start: 20050525, end: 20050525
  5. CYCLOPHOSPHAMIDE [Suspect]
     Indication: DIFFUSE LARGE B-CELL LYMPHOMA
     Dates: start: 20040101, end: 20050101
  6. DOXORUBICIN [Suspect]
     Indication: DIFFUSE LARGE B-CELL LYMPHOMA
     Dates: start: 20040101, end: 20050101
  7. VINCRISTINE [Suspect]
     Indication: DIFFUSE LARGE B-CELL LYMPHOMA
     Dates: start: 20040101, end: 20050101
  8. PREDNISONE [Suspect]
     Indication: DIFFUSE LARGE B-CELL LYMPHOMA
     Dates: start: 20040101, end: 20050101
  9. RITUXAN [Suspect]
     Indication: DIFFUSE LARGE B-CELL LYMPHOMA
     Dates: start: 20040101, end: 20050101
  10. DARBEPOETIN ALFA [Suspect]
     Indication: PROPHYLAXIS
     Dates: start: 20041112, end: 20050705

REACTIONS (7)
  - ARTHRALGIA [None]
  - HAEMOGLOBIN DECREASED [None]
  - HAEMORRHAGE [None]
  - HEADACHE [None]
  - RED BLOOD CELL COUNT DECREASED [None]
  - THROMBOCYTOPENIA [None]
  - WHITE BLOOD CELL COUNT DECREASED [None]
